FAERS Safety Report 17402781 (Version 1)
Quarter: 2020Q1

REPORT INFORMATION
  Report Type: Spontaneous
  Country: US (occurrence: US)
  Receive Date: 20200211
  Receipt Date: 20200211
  Transmission Date: 20200409
  Serious: No
  Sender: FDA-Public Use
  Company Number: US-PFIZER INC-2020055431

PATIENT
  Sex: Female

DRUGS (2)
  1. XANAX [Suspect]
     Active Substance: ALPRAZOLAM
     Indication: ANXIETY
     Dosage: 2 MG, 1X/DAY (SHE TOOK TWO 1MG TABLETS OF XANAX)
  2. ALPRAZOLAM. [Suspect]
     Active Substance: ALPRAZOLAM
     Dosage: 3 MG, 1X/DAY (THREE 1MG TABLETS OF ALPRAZOLAM AT ONE TIME)

REACTIONS (2)
  - Somnolence [Unknown]
  - Incorrect dose administered [Unknown]
